FAERS Safety Report 5033706-4 (Version None)
Quarter: 2006Q2

REPORT INFORMATION
  Report Type: 
  Country: None (occurrence: None)
  Receive Date: 20060623
  Receipt Date: 20060613
  Transmission Date: 20061013
  Serious: Yes (Hospitalization)
  Sender: FDA-Public Use
  Company Number: CA-JNJFOC-20060602938

PATIENT
  Age: 67 Year
  Sex: Female
  Weight: 50.45 kg

DRUGS (4)
  1. ACETAMINOPHEN [Suspect]
  2. ACETAMINOPHEN [Suspect]
     Indication: SUICIDE ATTEMPT
     Dosage: ^LARGE AMOUNT^
  3. MIRTAZAPINE [Concomitant]
  4. MIRTAZAPINE [Concomitant]
     Indication: MAJOR DEPRESSION

REACTIONS (6)
  - ASPHYXIA [None]
  - DROWNING [None]
  - DRUG TOXICITY [None]
  - HEPATIC NECROSIS [None]
  - INTENTIONAL OVERDOSE [None]
  - PULMONARY OEDEMA [None]
